FAERS Safety Report 6156378-4 (Version None)
Quarter: 2009Q2

REPORT INFORMATION
  Report Type: 
  Country: None (occurrence: None)
  Receive Date: 20090416
  Receipt Date: 20071015
  Transmission Date: 20091009
  Serious: Yes (Hospitalization, Other)
  Sender: FDA-Public Use
  Company Number: US-ASTRAZENECA-2006UW27627

PATIENT
  Age: 10070 Day
  Sex: Male
  Weight: 108.9 kg

DRUGS (30)
  1. SEROQUEL [Suspect]
     Indication: BIPOLAR DISORDER
     Route: 048
     Dates: start: 20010101, end: 20060101
  2. SEROQUEL [Suspect]
     Indication: ANXIETY
     Route: 048
     Dates: start: 20010101, end: 20060101
  3. SEROQUEL [Suspect]
     Indication: HALLUCINATION
     Route: 048
     Dates: start: 20010101, end: 20060101
  4. SEROQUEL [Suspect]
     Dosage: 200MG TO 400MG
     Route: 048
     Dates: start: 19900101, end: 20070101
  5. SEROQUEL [Suspect]
     Dosage: 200MG TO 400MG
     Route: 048
     Dates: start: 19900101, end: 20070101
  6. SEROQUEL [Suspect]
     Dosage: 200MG TO 400MG
     Route: 048
     Dates: start: 19900101, end: 20070101
  7. SEROQUEL [Suspect]
     Dosage: 25-100MG
     Route: 048
     Dates: start: 20040610
  8. SEROQUEL [Suspect]
     Dosage: 25-100MG
     Route: 048
     Dates: start: 20040610
  9. SEROQUEL [Suspect]
     Dosage: 25-100MG
     Route: 048
     Dates: start: 20040610
  10. ZYPREXA [Concomitant]
     Route: 048
     Dates: start: 20040513, end: 20040610
  11. ZYPREXA [Concomitant]
     Dosage: 10MG
     Route: 048
     Dates: start: 20040610, end: 20040615
  12. ZYPREXA [Concomitant]
     Dosage: 5MG
     Route: 048
     Dates: start: 20040615
  13. LORAZEPAM [Concomitant]
     Dosage: 1MG
     Route: 048
     Dates: start: 20050201
  14. TRAZODONE HCL [Concomitant]
     Route: 048
     Dates: start: 20050223
  15. EFFEXOR [Concomitant]
     Route: 048
     Dates: start: 20050223
  16. HALDOL [Concomitant]
  17. RISPERDAL [Concomitant]
     Dates: start: 19900101
  18. ZOLOFT [Concomitant]
  19. ROBAXIN [Concomitant]
  20. NAPROSYN [Concomitant]
  21. KLONOPIN [Concomitant]
  22. IBUPROFEN [Concomitant]
  23. CYCLOBENZAPRINE [Concomitant]
  24. PROMETHAZINE [Concomitant]
  25. AMOXIL [Concomitant]
  26. TYLENOL [Concomitant]
  27. METFORMIN HCL [Concomitant]
  28. GLIPIZIDE [Concomitant]
  29. ENDOCET [Concomitant]
  30. AMITRIPTYLINE HYDROCHLORIDE [Concomitant]

REACTIONS (21)
  - ALCOHOLISM [None]
  - ALOPECIA [None]
  - BACK INJURY [None]
  - BACK PAIN [None]
  - DYSTHYMIC DISORDER [None]
  - GASTROENTERITIS [None]
  - HEAD INJURY [None]
  - HEPATITIS C [None]
  - HYPOTENSION [None]
  - HYPOXIA [None]
  - INSOMNIA [None]
  - LOCALISED INFECTION [None]
  - LOSS OF CONSCIOUSNESS [None]
  - MAJOR DEPRESSION [None]
  - PANCREATITIS [None]
  - PNEUMONIA [None]
  - POLYSUBSTANCE DEPENDENCE [None]
  - SHARED PSYCHOTIC DISORDER [None]
  - SUBSTANCE ABUSE [None]
  - SUICIDAL IDEATION [None]
  - TYPE 2 DIABETES MELLITUS [None]
